FAERS Safety Report 26086471 (Version 1)
Quarter: 2025Q4

REPORT INFORMATION
  Report Type: Spontaneous
  Country: US (occurrence: US)
  Receive Date: 20251125
  Receipt Date: 20251125
  Transmission Date: 20260117
  Serious: Yes (Other)
  Sender: IMMUNOCORE
  Company Number: US-IMMUNOCORE, LTD-2025-IMC-005056

PATIENT
  Sex: Female

DRUGS (1)
  1. KIMMTRAK [Suspect]
     Active Substance: TEBENTAFUSP-TEBN
     Indication: Product used for unknown indication
     Dosage: UNK
     Route: 065

REACTIONS (7)
  - Hepatic cancer [Unknown]
  - Skin lesion [Unknown]
  - Hepatic lesion [Unknown]
  - Anxiety [Unknown]
  - Pruritus [Unknown]
  - Skin oedema [Unknown]
  - Rash [Unknown]
